FAERS Safety Report 10151786 (Version 2)
Quarter: 2014Q2

REPORT INFORMATION
  Report Type: Spontaneous
  Country: BR (occurrence: BR)
  Receive Date: 20140505
  Receipt Date: 20140604
  Transmission Date: 20141212
  Serious: Yes (Other)
  Sender: FDA-Public Use
  Company Number: BR-AMGEN INC.-BRASP2014032327

PATIENT
  Age: 22 Year
  Sex: Female

DRUGS (2)
  1. ENBREL [Suspect]
     Indication: PRODUCT USED FOR UNKNOWN INDICATION
     Dosage: 50, MG, 1 APPLICATION EVERY 15 DAYS
     Route: 065
     Dates: start: 2013
  2. METHOTREXATE [Concomitant]
     Dosage: 3 TABLETS, 1X/WEEK

REACTIONS (6)
  - Infection [Recovered/Resolved]
  - Platelet count decreased [Recovered/Resolved]
  - Thyroid disorder [Recovered/Resolved]
  - Pharyngeal disorder [Recovered/Resolved]
  - Lymphadenitis bacterial [Recovered/Resolved]
  - Lymphadenopathy [Recovered/Resolved]
